FAERS Safety Report 21555950 (Version 2)
Quarter: 2022Q4

REPORT INFORMATION
  Report Type: Spontaneous
  Country: DE (occurrence: DE)
  Receive Date: 20221104
  Receipt Date: 20221118
  Transmission Date: 20230112
  Serious: Yes (Hospitalization)
  Sender: FDA-Public Use
  Company Number: DE-TEVA-2022-DE-2822673

PATIENT
  Age: 69 Year
  Sex: Male

DRUGS (10)
  1. FOLIC ACID [Suspect]
     Active Substance: FOLIC ACID
     Indication: Progressive multifocal leukoencephalopathy
     Route: 065
  2. CARBOPLATIN [Suspect]
     Active Substance: CARBOPLATIN
     Indication: Oesophageal adenocarcinoma
     Dosage: 5 CYCLES; ON A WEEKLY BAISIS
     Route: 065
  3. PACLITAXEL [Suspect]
     Active Substance: PACLITAXEL
     Indication: Oesophageal adenocarcinoma
     Dosage: 5 CYCLES; ON A WEEKLY BAISIS
     Route: 065
  4. DEXAMETHASONE [Suspect]
     Active Substance: DEXAMETHASONE
     Indication: Brain oedema
     Dosage: 12 MILLIGRAM DAILY;
     Route: 065
  5. DEXAMETHASONE [Suspect]
     Active Substance: DEXAMETHASONE
     Indication: Oesophageal adenocarcinoma
  6. DEXAMETHASONE [Suspect]
     Active Substance: DEXAMETHASONE
     Indication: Metastases to central nervous system
  7. MIRTAZAPINE [Suspect]
     Active Substance: MIRTAZAPINE
     Indication: Progressive multifocal leukoencephalopathy
     Dosage: 30 MILLIGRAM DAILY;
     Route: 065
  8. CIDOFOVIR [Suspect]
     Active Substance: CIDOFOVIR
     Indication: Progressive multifocal leukoencephalopathy
     Dosage: 26.4286 MILLIGRAM DAILY;
     Route: 065
  9. MEFLOQUINE [Suspect]
     Active Substance: MEFLOQUINE
     Indication: Progressive multifocal leukoencephalopathy
     Dosage: THREE TIMES A DAY , 250 MG
     Route: 065
  10. VITAMIN B12 [Suspect]
     Active Substance: CYANOCOBALAMIN
     Indication: Progressive multifocal leukoencephalopathy
     Route: 065

REACTIONS (6)
  - Leukopenia [Not Recovered/Not Resolved]
  - Lymphopenia [Not Recovered/Not Resolved]
  - JC virus infection [Not Recovered/Not Resolved]
  - Progressive multifocal leukoencephalopathy [Not Recovered/Not Resolved]
  - Drug ineffective [Not Recovered/Not Resolved]
  - Progressive multifocal leukoencephalopathy [Unknown]
